FAERS Safety Report 25734941 (Version 1)
Quarter: 2025Q3

REPORT INFORMATION
  Report Type: Spontaneous
  Country: US (occurrence: None)
  Receive Date: 20250827
  Receipt Date: 20250827
  Transmission Date: 20251021
  Serious: Yes (Other)
  Sender: FDA-CTU
  Company Number: None

PATIENT
  Age: 45 Year
  Sex: Female

DRUGS (1)
  1. CLOZAPINE [Suspect]
     Active Substance: CLOZAPINE
     Indication: Psychotic disorder
     Route: 048
     Dates: start: 20241009

REACTIONS (4)
  - Fall [None]
  - Upper limb fracture [None]
  - Antipsychotic drug level above therapeutic [None]
  - Toxicity to various agents [None]

NARRATIVE: CASE EVENT DATE: 20250819
